FAERS Safety Report 5029571-1 (Version None)
Quarter: 2006Q2

REPORT INFORMATION
  Report Type: 
  Country: None (occurrence: None)
  Receive Date: 20060616
  Receipt Date: 20060616
  Transmission Date: 20061013
  Serious: Yes (Life-Threatening, Hospitalization)
  Sender: FDA-Public Use
  Company Number: None

PATIENT
  Age: 63 Year
  Sex: Male
  Weight: 101 kg

DRUGS (10)
  1. ULTRAVIST 370 [Suspect]
     Indication: COMPUTERISED TOMOGRAM
     Dosage: IV X1
     Route: 042
     Dates: start: 20060614
  2. OXYCODONE HCL [Concomitant]
  3. DOCUSATE SA [Concomitant]
  4. LEVOTHROXINE NA (SYNTHROID) [Concomitant]
  5. TIZANIDINE HCL [Concomitant]
  6. MORPHINE SULFATE [Concomitant]
  7. ASPIRIN [Concomitant]
  8. CARBAMAZEPINE [Concomitant]
  9. SIMVASTATIN [Concomitant]
  10. INSULIN , GLARGINE , HUMAN [Concomitant]

REACTIONS (2)
  - ANAPHYLACTIC REACTION [None]
  - CARDIAC ARREST [None]
